FAERS Safety Report 10854602 (Version 1)
Quarter: 2015Q1

REPORT INFORMATION
  Report Type: Spontaneous
  Country: US (occurrence: None)
  Receive Date: 20150218
  Receipt Date: 20150218
  Transmission Date: 20150721
  Serious: Yes (Other)
  Sender: FDA-Public Use
  Company Number: None

PATIENT
  Age: 22 Year
  Sex: Female
  Weight: 63.96 kg

DRUGS (1)
  1. PINK GRAPEFRUIT OIL FREE CLEANS [Suspect]
     Active Substance: SALICYLIC ACID
     Indication: SKIN COSMETIC PROCEDURE
     Dates: start: 20150215, end: 20150215

REACTIONS (3)
  - Application site erythema [None]
  - Application site exfoliation [None]
  - Application site pain [None]

NARRATIVE: CASE EVENT DATE: 20150215
